FAERS Safety Report 13078053 (Version 1)
Quarter: 2017Q1

REPORT INFORMATION
  Report Type: Report from Study
  Country: BR (occurrence: BR)
  Receive Date: 20170102
  Receipt Date: 20170102
  Transmission Date: 20170428
  Serious: Yes (Other)
  Sender: FDA-Public Use
  Company Number: BR-ROCHE-1862825

PATIENT
  Sex: Male
  Weight: 62 kg

DRUGS (3)
  1. XOLAIR [Suspect]
     Active Substance: OMALIZUMAB
     Indication: MECHANICAL URTICARIA
  2. LEVOCETIRIZINE [Concomitant]
     Active Substance: LEVOCETIRIZINE
     Indication: MECHANICAL URTICARIA
     Dosage: 1 DF, EVERY 36 HOURS
     Route: 048
     Dates: end: 201611
  3. XOLAIR [Suspect]
     Active Substance: OMALIZUMAB
     Indication: URTICARIA
     Dosage: 300 MG, QMO (2 AMPOULES OF 150 MG EACH PER MONTH)
     Route: 058

REACTIONS (8)
  - Pruritus [Unknown]
  - Mechanical urticaria [Not Recovered/Not Resolved]
  - Rebound effect [Not Recovered/Not Resolved]
  - Urticaria [Unknown]
  - Dermatitis allergic [Unknown]
  - Wound [Unknown]
  - Product use issue [Unknown]
  - Hypersensitivity [Unknown]
